FAERS Safety Report 21746199 (Version 1)
Quarter: 2022Q4

REPORT INFORMATION
  Report Type: Spontaneous
  Country: US (occurrence: US)
  Receive Date: 20221219
  Receipt Date: 20221219
  Transmission Date: 20230112
  Serious: No
  Sender: FDA-Public Use
  Company Number: US-Blueprint Medicines Corporation-649

PATIENT
  Sex: Female

DRUGS (3)
  1. AYVAKIT [Suspect]
     Active Substance: AVAPRITINIB
     Indication: Gastric cancer
     Route: 065
     Dates: start: 20220813
  2. AYVAKIT [Suspect]
     Active Substance: AVAPRITINIB
     Indication: Gastrointestinal stromal tumour
  3. AYVAKIT [Suspect]
     Active Substance: AVAPRITINIB
     Indication: Anaplastic lymphoma kinase gene mutation

REACTIONS (3)
  - Hepatic enzyme abnormal [Unknown]
  - Anaemia [Unknown]
  - COVID-19 [Unknown]
